FAERS Safety Report 19508250 (Version 1)
Quarter: 2021Q3

REPORT INFORMATION
  Report Type: Spontaneous
  Country: NL (occurrence: NL)
  Receive Date: 20210708
  Receipt Date: 20210708
  Transmission Date: 20211014
  Serious: Yes (Death, Hospitalization)
  Sender: FDA-Public Use
  Company Number: NL-CELGENEUS-NLD-20210700802

PATIENT
  Age: 71 Year
  Sex: Male

DRUGS (7)
  1. VENETOCLAX. [Suspect]
     Active Substance: VENETOCLAX
     Dosage: 400 MILLIGRAM
     Route: 048
     Dates: start: 2021, end: 2021
  2. VENETOCLAX. [Suspect]
     Active Substance: VENETOCLAX
     Dosage: 300 MILLIGRAM
     Route: 048
     Dates: start: 2021, end: 2021
  3. AZACITIDINE. [Suspect]
     Active Substance: AZACITIDINE
     Indication: ACUTE MYELOID LEUKAEMIA
     Route: 058
     Dates: start: 20210119, end: 20210126
  4. VENETOCLAX. [Suspect]
     Active Substance: VENETOCLAX
     Indication: ACUTE MYELOID LEUKAEMIA
     Dosage: 100 MILLIGRAM
     Route: 048
     Dates: start: 20210119, end: 20210120
  5. DACOGEN [Suspect]
     Active Substance: DECITABINE
     Indication: ACUTE MYELOID LEUKAEMIA
     Route: 065
     Dates: start: 201907, end: 202007
  6. VENETOCLAX. [Suspect]
     Active Substance: VENETOCLAX
     Dosage: 200 MILLIGRAM
     Route: 048
     Dates: start: 2021, end: 2021
  7. DACOGEN [Suspect]
     Active Substance: DECITABINE
     Route: 048
     Dates: start: 20210119, end: 202101

REACTIONS (5)
  - Infection [Fatal]
  - Acute myeloid leukaemia [Fatal]
  - Candida infection [Recovered/Resolved]
  - Neutropenia [Not Recovered/Not Resolved]
  - Therapy non-responder [Fatal]

NARRATIVE: CASE EVENT DATE: 2021
